FAERS Safety Report 9162237 (Version 2)
Quarter: 2013Q1

REPORT INFORMATION
  Report Type: Spontaneous
  Country: GB (occurrence: GB)
  Receive Date: 20130314
  Receipt Date: 20130329
  Transmission Date: 20140127
  Serious: Yes (Other)
  Sender: FDA-Public Use
  Company Number: PHFR2013GB000691

PATIENT
  Age: 56 Year
  Sex: Female

DRUGS (18)
  1. CLOZARIL [Suspect]
     Dosage: UNK
     Route: 048
     Dates: start: 20021017
  2. CLOZARIL [Suspect]
     Dosage: 100 MG, UNK
     Route: 048
  3. CLOZARIL [Suspect]
     Dosage: 300 MG, UNK
     Route: 048
  4. METFORMIN [Concomitant]
     Dosage: 500 MG, BID
  5. LORAZEPAM [Concomitant]
     Dosage: 1 MG, HALF TABLET DAILY PRN
  6. MACROGOL [Concomitant]
     Dosage: UKN, QD
  7. BETAHISTINE 2HCL [Concomitant]
     Dosage: 16 MG, TID
  8. LAMOTRIGINE [Concomitant]
     Dosage: 200 MG X 2 NOCTE
  9. DOMPERIDONE [Concomitant]
     Dosage: 10 MG, TID
  10. ESOMEPRAZOLE [Concomitant]
     Dosage: 20 MG, BID
  11. SIMVASTATIN [Concomitant]
     Dosage: 40 MG, QD
  12. BISOPROLOL FUMARATE [Concomitant]
     Dosage: 1.25 MG, QD
  13. RANITIDINE [Concomitant]
     Dosage: 150 MG, BID
  14. NITROFURANTOIN [Concomitant]
     Dosage: 100 MG, NOCTE
  15. DULOXETINE [Concomitant]
     Dosage: 60 MG, QD
  16. CLONAZEPAM [Concomitant]
     Dosage: 1 MG, BID
  17. FERROUS SULPHATE [Concomitant]
     Dosage: 1 DF, BID
  18. KWELLS [Concomitant]
     Dosage: 300 UG, NOCTE

REACTIONS (12)
  - Mental disorder [Recovering/Resolving]
  - Hallucination, olfactory [Recovering/Resolving]
  - Somatic delusion [Recovering/Resolving]
  - Suicidal ideation [Recovering/Resolving]
  - Self-injurious ideation [Recovering/Resolving]
  - Transient ischaemic attack [Recovering/Resolving]
  - Urinary tract infection [Recovering/Resolving]
  - Diabetes mellitus [Recovering/Resolving]
  - Hypercholesterolaemia [Recovering/Resolving]
  - Fatigue [Recovering/Resolving]
  - Iron deficiency anaemia [Recovering/Resolving]
  - Haemoglobin decreased [Recovering/Resolving]
